FAERS Safety Report 10419257 (Version 3)
Quarter: 2014Q4

REPORT INFORMATION
  Report Type: Spontaneous
  Country: US (occurrence: US)
  Receive Date: 20140829
  Receipt Date: 20141010
  Transmission Date: 20150528
  Serious: Yes (Hospitalization, Other)
  Sender: FDA-Public Use
  Company Number: US-BAYER-2014-125657

PATIENT
  Age: 7 Year
  Sex: Male
  Weight: 86 kg

DRUGS (3)
  1. BAYER GENUINE ASPIRIN [Suspect]
     Active Substance: ASPIRIN
     Indication: PYREXIA
  2. ASPIRIN. [Concomitant]
     Active Substance: ASPIRIN
     Indication: ISCHAEMIC HEART DISEASE PROPHYLAXIS
     Dosage: 1 UNK, UNK
     Route: 048
     Dates: start: 1999
  3. BAYER GENUINE ASPIRIN [Suspect]
     Active Substance: ASPIRIN
     Indication: PAIN
     Dosage: UNK, PRN
     Route: 048
     Dates: start: 1957

REACTIONS (5)
  - Duodenal ulcer [Recovering/Resolving]
  - Loss of consciousness [Recovered/Resolved]
  - Drug administered to patient of inappropriate age [None]
  - Ulcer [Recovered/Resolved]
  - Haematochezia [Recovered/Resolved]

NARRATIVE: CASE EVENT DATE: 1958
